FAERS Safety Report 9428054 (Version 1)
Quarter: 2013Q3

REPORT INFORMATION
  Report Type: Spontaneous
  Country: US (occurrence: US)
  Receive Date: 20130730
  Receipt Date: 20130730
  Transmission Date: 20140515
  Serious: No
  Sender: FDA-Public Use
  Company Number: US-ABBOTT-12P-163-0962145-00

PATIENT
  Age: 27 Year
  Sex: Male
  Weight: 63.56 kg

DRUGS (3)
  1. NIASPAN (COATED) 1000MG [Suspect]
     Indication: ROUTINE HEALTH MAINTENANCE
  2. LOVAZA [Concomitant]
     Indication: ROUTINE HEALTH MAINTENANCE
  3. PRILOSEC [Concomitant]
     Indication: DYSPEPSIA

REACTIONS (2)
  - Coeliac disease [Not Recovered/Not Resolved]
  - Dyspepsia [Not Recovered/Not Resolved]
